FAERS Safety Report 19815168 (Version 3)
Quarter: 2021Q4

REPORT INFORMATION
  Report Type: Spontaneous
  Country: US (occurrence: US)
  Receive Date: 20210910
  Receipt Date: 20211122
  Transmission Date: 20220303
  Serious: No
  Sender: FDA-Public Use
  Company Number: US-PFIZER INC-202101050619

PATIENT
  Age: 4 Year
  Sex: Male
  Weight: 16.33 kg

DRUGS (3)
  1. GENOTROPIN [Suspect]
     Active Substance: SOMATROPIN
     Indication: Blood growth hormone
     Dosage: UNK, 1X/DAY (0.2 DOSE UNITS NOT SPECIFIED INJECT ONCE A DAY THIGHS AND CHEEKS)
  2. GENOTROPIN [Suspect]
     Active Substance: SOMATROPIN
     Indication: Short stature
     Dosage: 0.2 MG, 1X/DAY
     Dates: start: 20190929
  3. GENOTROPIN [Suspect]
     Active Substance: SOMATROPIN
     Indication: Nephropathy
     Dosage: UNK
     Dates: end: 20210813

REACTIONS (6)
  - Poor quality device used [Unknown]
  - Device information output issue [Unknown]
  - Drug dose omission by device [Unknown]
  - Device use issue [Unknown]
  - Off label use [Unknown]
  - Product administered at inappropriate site [Unknown]

NARRATIVE: CASE EVENT DATE: 20210812
